FAERS Safety Report 12640798 (Version 3)
Quarter: 2017Q2

REPORT INFORMATION
  Report Type: Spontaneous
  Country: GB (occurrence: GB)
  Receive Date: 20160810
  Receipt Date: 20170630
  Transmission Date: 20170830
  Serious: Yes (Hospitalization, Other)
  Sender: FDA-Public Use
  Company Number: GB-PFIZER INC-2016373951

PATIENT
  Age: 71 Year
  Sex: Male
  Weight: 101 kg

DRUGS (10)
  1. VANCOMYCIN [Suspect]
     Active Substance: VANCOMYCIN
     Indication: CELLULITIS
     Dosage: 1.5 G, 2X/DAY
     Route: 042
     Dates: start: 20160610, end: 20160613
  2. ALLOPURINOL. [Concomitant]
     Active Substance: ALLOPURINOL
     Dosage: IN MORNING.
     Route: 048
  3. LENOGRASTIM [Concomitant]
     Active Substance: LENOGRASTIM
     Dosage: 263 UG, 1X/DAY
     Route: 058
     Dates: start: 20160612, end: 20160614
  4. MOVICOL [Concomitant]
     Active Substance: POLYETHYLENE GLYCOL 3350\POTASSIUM CHLORIDE\SODIUM BICARBONATE\SODIUM CHLORIDE
     Dosage: 13.8 G, 2X/DAY
     Route: 048
  5. COTRIMOXAZOLE [Concomitant]
     Active Substance: SULFAMETHOXAZOLE\TRIMETHOPRIM
     Indication: PROPHYLAXIS
     Dosage: IN MORNING. 80MG/400MG.
  6. PARACETAMOL [Concomitant]
     Active Substance: ACETAMINOPHEN
     Dosage: FOUR TIMES A DAY
     Route: 048
  7. GEMCITABINE [Concomitant]
     Active Substance: GEMCITABINE\GEMCITABINE HYDROCHLORIDE
     Indication: CHEMOTHERAPY
     Dosage: ONE DOSE RECEIVED ON 03.06.2016 AND ONE RECEIVED ON 10.06.2016. DRUG WITHHELD
     Route: 042
     Dates: start: 20160603
  8. RITUXIMAB [Concomitant]
     Active Substance: RITUXIMAB
     Indication: CHEMOTHERAPY
     Dosage: 830 MG, UNK
     Route: 042
     Dates: start: 20160603
  9. CISPLATIN. [Suspect]
     Active Substance: CISPLATIN
     Indication: CHEMOTHERAPY
     Dosage: 220 MG, UNK
     Route: 042
     Dates: start: 20160617
  10. DALTEPARIN [Concomitant]
     Active Substance: DALTEPARIN
     Dosage: 18000 IU, 1X/DAY
     Route: 058

REACTIONS (2)
  - Renal impairment [Not Recovered/Not Resolved]
  - Cellulitis [Unknown]

NARRATIVE: CASE EVENT DATE: 20160716
